FAERS Safety Report 20798919 (Version 1)
Quarter: 2022Q2

REPORT INFORMATION
  Report Type: Spontaneous
  Country: US (occurrence: US)
  Receive Date: 20220507
  Receipt Date: 20220507
  Transmission Date: 20220721
  Serious: No
  Sender: FDA-Public Use
  Company Number: US-TEVA-2022-US-2027405

PATIENT
  Age: 24 Year
  Sex: Female
  Weight: 81.6 kg

DRUGS (3)
  1. TREPROSTINIL [Suspect]
     Active Substance: TREPROSTINIL
     Indication: Pulmonary arterial hypertension
     Route: 042
  2. TADALAFIL [Concomitant]
     Active Substance: TADALAFIL
     Route: 065
  3. OPSUMIT [Concomitant]
     Active Substance: MACITENTAN
     Route: 065

REACTIONS (2)
  - Paraesthesia [Unknown]
  - Device maintenance issue [Unknown]
